FAERS Safety Report 7401015-1 (Version None)
Quarter: 2011Q2

REPORT INFORMATION
  Report Type: 
  Country: None (occurrence: None)
  Receive Date: 20110407
  Receipt Date: 20110401
  Transmission Date: 20111010
  Serious: Yes (Life-Threatening, Other)
  Sender: FDA-Public Use
  Company Number: GB-TEVA-274854ISR

PATIENT
  Age: 23 Year
  Sex: Male

DRUGS (1)
  1. BECLOMETHASONE DIPROPIONATE [Suspect]
     Dates: start: 20110113, end: 20110113

REACTIONS (1)
  - ANAPHYLACTIC REACTION [None]
